FAERS Safety Report 19589854 (Version 1)
Quarter: 2021Q3

REPORT INFORMATION
  Report Type: Spontaneous
  Country: US (occurrence: US)
  Receive Date: 20210721
  Receipt Date: 20210721
  Transmission Date: 20211014
  Serious: No
  Sender: FDA-Public Use
  Company Number: US-IGSA-BIG0014912

PATIENT
  Sex: Female

DRUGS (2)
  1. XEMBIFY [Suspect]
     Active Substance: HUMAN IMMUNOGLOBULIN G
     Indication: IMMUNODEFICIENCY COMMON VARIABLE
     Dosage: 8 GRAM, Q.WK.
     Route: 058
     Dates: start: 202012
  2. ZYRTEC [Concomitant]
     Active Substance: CETIRIZINE HYDROCHLORIDE
     Indication: PREMEDICATION

REACTIONS (3)
  - Infusion site pain [Recovering/Resolving]
  - Infusion site bruising [Recovering/Resolving]
  - Infusion site erythema [Recovering/Resolving]
